FAERS Safety Report 5431694-X (Version None)
Quarter: 2007Q3

REPORT INFORMATION
  Report Type: 
  Country: None (occurrence: None)
  Receive Date: 20070828
  Receipt Date: 20070820
  Transmission Date: 20080115
  Serious: Yes (Hospitalization)
  Sender: FDA-Public Use
  Company Number: 060002L07USA

PATIENT
  Age: 30 Year
  Sex: Female

DRUGS (1)
  1. CLOMIPHENE CITRATE [Suspect]

REACTIONS (5)
  - ABDOMINAL PAIN UPPER [None]
  - HEPATIC STEATOSIS [None]
  - MURPHY'S SIGN POSITIVE [None]
  - NAUSEA [None]
  - VOMITING [None]
